FAERS Safety Report 16896912 (Version 1)
Quarter: 2019Q4

REPORT INFORMATION
  Report Type: Spontaneous
  Country: US (occurrence: US)
  Receive Date: 20191009
  Receipt Date: 20191009
  Transmission Date: 20200122
  Serious: Yes (Hospitalization)
  Sender: FDA-Public Use
  Company Number: US-ABBVIE-19K-163-2949135-00

PATIENT
  Sex: Female
  Weight: 44.04 kg

DRUGS (2)
  1. HUMIRA [Suspect]
     Active Substance: ADALIMUMAB
     Indication: PRODUCT USED FOR UNKNOWN INDICATION
     Route: 058
     Dates: start: 2011
  2. METHOTREXATE. [Suspect]
     Active Substance: METHOTREXATE
     Indication: RHEUMATOID ARTHRITIS
     Route: 065
     Dates: start: 1980

REACTIONS (4)
  - Stomatitis [Recovered/Resolved]
  - Respiratory disorder [Recovered/Resolved]
  - Atrial fibrillation [Recovered/Resolved]
  - Pharyngeal ulceration [Recovered/Resolved]
